FAERS Safety Report 5267730-3 (Version None)
Quarter: 2007Q1

REPORT INFORMATION
  Report Type: 
  Country: None (occurrence: None)
  Receive Date: 20070316
  Receipt Date: 20070306
  Transmission Date: 20070707
  Serious: Yes (Other)
  Sender: FDA-Public Use
  Company Number: AU-PFIZER INC-2007009915

PATIENT
  Sex: Female
  Weight: 42 kg

DRUGS (6)
  1. SILDENAFIL (PAH) [Suspect]
     Indication: PULMONARY HYPERTENSION
     Route: 048
  2. BOSENTAN [Suspect]
     Indication: PULMONARY HYPERTENSION
     Route: 048
  3. CIPROFLOXACIN HYDROCHLORIDE [Suspect]
     Indication: CREST SYNDROME
     Route: 048
  4. METRONIDAZOLE [Suspect]
     Indication: CREST SYNDROME
     Route: 048
  5. LOSEC [Concomitant]
     Route: 048
  6. MULTI-VITAMINS [Concomitant]
     Route: 048

REACTIONS (1)
  - THROMBOCYTOPENIA [None]
